FAERS Safety Report 5611767-9 (Version None)
Quarter: 2008Q1

REPORT INFORMATION
  Report Type: 
  Country: None (occurrence: None)
  Receive Date: 20080128
  Receipt Date: 20080111
  Transmission Date: 20080703
  Serious: Yes (Hospitalization)
  Sender: FDA-Public Use
  Company Number: 100#08#2008-00317

PATIENT
  Age: 62 Year
  Sex: Male

DRUGS (10)
  1. SIMVASTATIN [Suspect]
     Indication: PROPHYLAXIS
     Dosage: 40 MG
     Dates: start: 20040101
  2. DIGITOXIN (DIGITOXIN) [Suspect]
     Indication: CARDIAC FAILURE
     Dosage: 0.07 MG
     Dates: start: 20060801
  3. AMIODARONE HCL [Suspect]
     Indication: DRUG USE FOR UNKNOWN INDICATION
     Dosage: 200 MG
     Dates: start: 20040101
  4. RAMIPRIL [Concomitant]
  5. CARVEDILOL [Concomitant]
  6. TORSEMIDE [Concomitant]
  7. SPIRONOLACTONE [Concomitant]
  8. MOLSIDOMINE (MOLSIDOMINE) [Concomitant]
  9. ACETYLSALICYLIC ACID SRT [Concomitant]
  10. CLOPIDOGREL [Concomitant]

REACTIONS (3)
  - DRUG INTERACTION [None]
  - RHABDOMYOLYSIS [None]
  - VENTRICULAR TACHYCARDIA [None]
